FAERS Safety Report 7834972-X (Version None)
Quarter: 2011Q4

REPORT INFORMATION
  Report Type: 
  Country: None (occurrence: None)
  Receive Date: 20111024
  Receipt Date: 20111014
  Transmission Date: 20120403
  Serious: Yes (Other)
  Sender: FDA-Public Use
  Company Number: US-US-EMD SERONO, INC.-7088682

PATIENT
  Sex: Female
  Weight: 98 kg

DRUGS (1)
  1. REBIF [Suspect]
     Indication: MULTIPLE SCLEROSIS
     Dates: end: 20111004

REACTIONS (5)
  - PRURITUS [None]
  - ERYTHEMA [None]
  - SWELLING [None]
  - FATIGUE [None]
  - CONVULSION [None]
